FAERS Safety Report 9862552 (Version 1)
Quarter: 2014Q1

REPORT INFORMATION
  Report Type: Spontaneous
  Country: US (occurrence: US)
  Receive Date: 20140203
  Receipt Date: 20140203
  Transmission Date: 20141002
  Serious: Yes (Other)
  Sender: FDA-Public Use
  Company Number: US-PFIZER INC-2014029223

PATIENT
  Age: 59 Year
  Sex: Female
  Weight: 58.9 kg

DRUGS (1)
  1. ESTRING [Suspect]
     Indication: MENOPAUSAL SYMPTOMS
     Dosage: UNK, EVERY 3 MONTHS
     Route: 067
     Dates: start: 2010, end: 20140128

REACTIONS (4)
  - Urinary tract infection [Not Recovered/Not Resolved]
  - Uterine pain [Not Recovered/Not Resolved]
  - Product quality issue [Unknown]
  - Drug ineffective [Unknown]
